FAERS Safety Report 9819254 (Version 2)
Quarter: 2014Q1

REPORT INFORMATION
  Report Type: Spontaneous
  Country: JP (occurrence: JP)
  Receive Date: 20140115
  Receipt Date: 20140115
  Transmission Date: 20141002
  Serious: Yes (Hospitalization)
  Sender: FDA-Public Use
  Company Number: JP-ASTRAZENECA-2013SE86659

PATIENT
  Age: 61 Year
  Sex: Female

DRUGS (2)
  1. ARIMIDEX [Suspect]
     Indication: BREAST CANCER
     Route: 048
  2. RADIOTHERAPY [Suspect]
     Indication: BREAST CANCER
     Dosage: 50GY (NONOPPOSING PORTAL IRRADIATION, 2GY/D, 5FR/W, 15-DEGREE WEDGE, FILTER USED, WITHOUT BOOST RADI

REACTIONS (1)
  - Organising pneumonia [Recovered/Resolved]
